FAERS Safety Report 5546021-7 (Version None)
Quarter: 2007Q4

REPORT INFORMATION
  Report Type: 
  Country: None (occurrence: None)
  Receive Date: 20071211
  Receipt Date: 20071025
  Transmission Date: 20080405
  Serious: No
  Sender: FDA-Public Use
  Company Number: US-BRISTOL-MYERS SQUIBB COMPANY-13803309

PATIENT
  Age: 58 Year
  Sex: Female
  Weight: 57 kg

DRUGS (4)
  1. EMSAM [Suspect]
     Indication: DEPRESSION
     Route: 062
     Dates: start: 20070531
  2. FIBER MATE [Concomitant]
  3. CONCERTA [Concomitant]
  4. DEXTROAMPHETAMINE [Concomitant]

REACTIONS (8)
  - ANOREXIA [None]
  - APPLICATION SITE ERYTHEMA [None]
  - BLOOD PRESSURE INCREASED [None]
  - CRYING [None]
  - DRY MOUTH [None]
  - INSOMNIA [None]
  - MUSCLE TIGHTNESS [None]
  - WEIGHT INCREASED [None]
